FAERS Safety Report 6965518-6 (Version None)
Quarter: 2010Q3

REPORT INFORMATION
  Report Type: 
  Country: None (occurrence: None)
  Receive Date: 20100903
  Receipt Date: 20100825
  Transmission Date: 20110219
  Serious: Yes (Hospitalization, Other)
  Sender: FDA-Public Use
  Company Number: US-PFIZER INC-2010107943

PATIENT
  Sex: Female
  Weight: 58 kg

DRUGS (2)
  1. LYRICA [Suspect]
     Indication: NEURALGIA
     Dosage: 75 MG, 2X/DAY
     Route: 048
     Dates: start: 20060901, end: 20100701
  2. XANAX [Concomitant]
     Indication: ANXIETY
     Dosage: UNK

REACTIONS (12)
  - DYSPNOEA [None]
  - EYE SWELLING [None]
  - FLUID RETENTION [None]
  - GAIT DISTURBANCE [None]
  - HEART RATE IRREGULAR [None]
  - HYPERSENSITIVITY [None]
  - INCREASED BRONCHIAL SECRETION [None]
  - RASH [None]
  - SPEECH DISORDER [None]
  - URINARY TRACT DISORDER [None]
  - VISION BLURRED [None]
  - WEIGHT INCREASED [None]
